FAERS Safety Report 14966067 (Version 1)
Quarter: 2018Q3

REPORT INFORMATION
  Report Type: Spontaneous
  Country: US (occurrence: US)
  Receive Date: 20180603
  Receipt Date: 20180603
  Transmission Date: 20181010
  Serious: No
  Sender: FDA-Public Use
  Company Number: US-TEVA-2018-US-897828

PATIENT
  Sex: Female

DRUGS (1)
  1. TEVA FLUDROCORTISONE ACETATE [Suspect]
     Active Substance: FLUDROCORTISONE ACETATE
     Dates: start: 2015

REACTIONS (4)
  - Urticaria [Unknown]
  - Pruritus [Unknown]
  - Product quality issue [Unknown]
  - Rash [Unknown]

NARRATIVE: CASE EVENT DATE: 2015
